FAERS Safety Report 7078277-6 (Version None)
Quarter: 2010Q4

REPORT INFORMATION
  Report Type: 
  Country: None (occurrence: None)
  Receive Date: 20101101
  Receipt Date: 20101101
  Transmission Date: 20110411
  Serious: Yes (Hospitalization)
  Sender: FDA-Public Use
  Company Number: None

PATIENT
  Age: 62 Year
  Sex: Male
  Weight: 100 kg

DRUGS (1)
  1. PIOGLITAZONE [Suspect]
     Indication: DIABETES MELLITUS
     Dosage: 45MG EVERY DAY PO
     Route: 048
     Dates: start: 20100608, end: 20101010

REACTIONS (8)
  - ABDOMINAL DISTENSION [None]
  - CHEST DISCOMFORT [None]
  - COUGH [None]
  - DIABETIC KETOACIDOSIS [None]
  - DYSPNOEA EXERTIONAL [None]
  - OEDEMA PERIPHERAL [None]
  - WEIGHT INCREASED [None]
  - WHEEZING [None]
